FAERS Safety Report 19349559 (Version 1)
Quarter: 2021Q2

REPORT INFORMATION
  Report Type: Spontaneous
  Country: CN (occurrence: CN)
  Receive Date: 20210531
  Receipt Date: 20210531
  Transmission Date: 20210717
  Serious: Yes (Hospitalization, Other)
  Sender: FDA-Public Use
  Company Number: CN-LUPIN PHARMACEUTICALS INC.-2021-08099

PATIENT
  Age: 23 Year
  Sex: Female

DRUGS (13)
  1. DEXAMETHASONE. [Suspect]
     Active Substance: DEXAMETHASONE
     Indication: ACUTE MYELOID LEUKAEMIA
     Dosage: 10 MILLIGRAM, ON DAYS 1 TO 16; CO?ADMINISTERED FOR THE CONSOLIDATION THERAPY
     Route: 065
  2. VINDESINE [Suspect]
     Active Substance: VINDESINE
     Indication: ACUTE LYMPHOCYTIC LEUKAEMIA
     Dosage: 4 MILLIGRAM; ON DAYS 1, 8, 15 AND 22; ALSO CO?ADMINISTERED FOR THE CONSOLIDATION THERAPY
     Route: 065
  3. IDARUBICIN [Suspect]
     Active Substance: IDARUBICIN
     Indication: ACUTE MYELOID LEUKAEMIA
  4. DECITABINE. [Suspect]
     Active Substance: DECITABINE
     Indication: ACUTE MYELOID LEUKAEMIA
  5. VENETOCLAX. [Suspect]
     Active Substance: VENETOCLAX
     Indication: ACUTE MYELOID LEUKAEMIA
     Dosage: 200 MILLIGRAM, QD; ON DAY 2; REGIMEN WAS REPEATED FOR CONSOLIDATION
     Route: 048
  6. DEXAMETHASONE. [Suspect]
     Active Substance: DEXAMETHASONE
     Dosage: 5 MILLIGRAM, ON DAYS 17 TO 20; CO?ADMINISTERED FOR THE CONSOLIDATION THERAPY
     Route: 065
  7. VENETOCLAX. [Suspect]
     Active Substance: VENETOCLAX
     Dosage: 400 MILLIGRAM, QD; ON DAYS 3 TO 28; REGIMEN WAS REPEATED FOR CONSOLIDATION
     Route: 048
  8. IDARUBICIN [Suspect]
     Active Substance: IDARUBICIN
     Indication: ACUTE LYMPHOCYTIC LEUKAEMIA
     Dosage: 12 MILLIGRAM/SQ. METER (ON DAYS 1 TO 3)
     Route: 065
  9. DEXAMETHASONE. [Suspect]
     Active Substance: DEXAMETHASONE
     Dosage: 2.5 MILLIGRAM, ON DAYS 21 AND 22; CO?ADMINISTERED FOR THE CONSOLIDATION THERAPY
     Route: 065
  10. VENETOCLAX. [Suspect]
     Active Substance: VENETOCLAX
     Indication: ACUTE LYMPHOCYTIC LEUKAEMIA
     Dosage: 100 MILLIGRAM, QD; ON DAY 1; REGIMEN WAS REPEATED FOR CONSOLIDATION
     Route: 048
  11. DEXAMETHASONE. [Suspect]
     Active Substance: DEXAMETHASONE
     Indication: ACUTE LYMPHOCYTIC LEUKAEMIA
     Dosage: 15 MILLIGRAM, ON DAYS 1 TO 28 AS PART OF ACUTE MYELOID LEUKAEMIA?BASED THERAPY
     Route: 065
  12. VINDESINE [Suspect]
     Active Substance: VINDESINE
     Indication: ACUTE MYELOID LEUKAEMIA
  13. DECITABINE. [Suspect]
     Active Substance: DECITABINE
     Indication: ACUTE LYMPHOCYTIC LEUKAEMIA
     Dosage: 50 MILLIGRAM, ADMINISTERED FOR SEVEN CONSECUTIVE DAYS; REGIMEN WAS REPEATED FOR CONSOLIDATION
     Route: 042

REACTIONS (4)
  - Gastrointestinal toxicity [Unknown]
  - Neutropenia [Unknown]
  - Anaemia [Unknown]
  - Thrombocytopenia [Unknown]
